FAERS Safety Report 17715926 (Version 1)
Quarter: 2020Q2

REPORT INFORMATION
  Report Type: Spontaneous
  Country: JP (occurrence: JP)
  Receive Date: 20200428
  Receipt Date: 20200428
  Transmission Date: 20200714
  Serious: Yes (Other)
  Sender: FDA-Public Use
  Company Number: JP-SUN PHARMACEUTICAL INDUSTRIES LTD-2020RR-245248

PATIENT
  Age: 1 Day
  Weight: 2.37 kg

DRUGS (5)
  1. METOCLOPRAMIDE. [Suspect]
     Active Substance: METOCLOPRAMIDE
     Indication: HYPERPARATHYROIDISM
     Dosage: UNK
     Route: 064
  2. ALFACALCIDOL [Suspect]
     Active Substance: ALFACALCIDOL
     Indication: HYPERPARATHYROIDISM
     Dosage: 0.5 MICROGRAM, DAILY
     Route: 064
  3. FAMOTIDINE. [Suspect]
     Active Substance: FAMOTIDINE
     Indication: HYPERPARATHYROIDISM
     Dosage: UNK
     Route: 064
  4. MAXACALCITOL [Suspect]
     Active Substance: MAXACALCITOL
     Indication: HYPERPARATHYROIDISM
     Dosage: 2.5 MICROGRAM, 3 TIMES/WEEK
     Route: 064
  5. CALCIUM CARBONATE. [Suspect]
     Active Substance: CALCIUM CARBONATE
     Indication: HYPERPARATHYROIDISM
     Dosage: UNK
     Route: 064

REACTIONS (3)
  - Premature baby [Unknown]
  - Foetal exposure during pregnancy [Unknown]
  - Asphyxia [Unknown]
